FAERS Safety Report 17850310 (Version 1)
Quarter: 2020Q2

REPORT INFORMATION
  Report Type: Spontaneous
  Country: US (occurrence: US)
  Receive Date: 20200602
  Receipt Date: 20200602
  Transmission Date: 20200714
  Serious: Yes (Other)
  Sender: FDA-Public Use
  Company Number: US-ELI_LILLY_AND_COMPANY-US202005010787

PATIENT
  Age: 92 Year
  Sex: Female

DRUGS (13)
  1. HUMALOG [Suspect]
     Active Substance: INSULIN LISPRO
     Dosage: 5 U, DAILY (AT LUNCH)
     Route: 065
     Dates: start: 2000
  2. HUMALOG [Suspect]
     Active Substance: INSULIN LISPRO
     Dosage: UNK UNK, EACH EVENING EACH EVENING (BEFORE GOING TO BED AT SLIDING SCALE)
     Route: 065
     Dates: start: 2000
  3. HUMALOG [Suspect]
     Active Substance: INSULIN LISPRO
     Dosage: 5 U, DAILY (AT LUNCH)
     Route: 065
     Dates: start: 2000
  4. HUMALOG [Suspect]
     Active Substance: INSULIN LISPRO
     Dosage: 6-7 U, EACH EVENING (AT DINNER)
     Route: 065
     Dates: start: 2000
  5. HUMALOG [Suspect]
     Active Substance: INSULIN LISPRO
     Dosage: 5 U, DAILY (AT LUNCH)
     Route: 065
     Dates: start: 2000
  6. HUMALOG [Suspect]
     Active Substance: INSULIN LISPRO
     Indication: TYPE 2 DIABETES MELLITUS
     Dosage: 6 U, EACH MORNING
     Route: 065
     Dates: start: 2000
  7. HUMALOG [Suspect]
     Active Substance: INSULIN LISPRO
     Dosage: 6-7 U, EACH EVENING (AT DINNER)
     Route: 065
     Dates: start: 2000
  8. HUMALOG [Suspect]
     Active Substance: INSULIN LISPRO
     Dosage: 6 U, EACH MORNING
     Route: 065
     Dates: start: 2000
  9. HUMALOG [Suspect]
     Active Substance: INSULIN LISPRO
     Dosage: 6 U, EACH MORNING
     Route: 065
     Dates: start: 2000
  10. HUMALOG [Suspect]
     Active Substance: INSULIN LISPRO
     Dosage: 6-7 U, EACH EVENING (AT DINNER)
     Route: 065
     Dates: start: 2000
  11. HUMALOG [Suspect]
     Active Substance: INSULIN LISPRO
     Dosage: UNK UNK, EACH EVENING EACH EVENING (BEFORE GOING TO BED AT SLIDING SCALE)
     Route: 065
  12. LANTUS [Concomitant]
     Active Substance: INSULIN GLARGINE
     Indication: TYPE 2 DIABETES MELLITUS
     Dosage: UNK, PRN
     Route: 065
  13. HUMALOG [Suspect]
     Active Substance: INSULIN LISPRO
     Dosage: UNK UNK, EACH EVENING EACH EVENING (BEFORE GOING TO BED AT SLIDING SCALE)
     Route: 065

REACTIONS (4)
  - Blood glucose decreased [Recovering/Resolving]
  - Blood glucose increased [Recovering/Resolving]
  - Blood glucose increased [Recovering/Resolving]
  - Product dose omission [Unknown]

NARRATIVE: CASE EVENT DATE: 20200526
